FAERS Safety Report 5169494-0 (Version None)
Quarter: 2006Q4

REPORT INFORMATION
  Report Type: 
  Country: None (occurrence: None)
  Receive Date: 20061211
  Receipt Date: 20060516
  Transmission Date: 20070319
  Serious: Yes (Hospitalization)
  Sender: FDA-Public Use
  Company Number: US-ABBOTT-06P-163-0333248-00

PATIENT
  Sex: Female
  Weight: 89.892 kg

DRUGS (7)
  1. HUMIRA [Suspect]
     Indication: RHEUMATOID ARTHRITIS
     Route: 058
     Dates: start: 20050101, end: 20060401
  2. ALPRAZOLAM [Concomitant]
     Indication: ANXIETY
     Route: 048
  3. VICODIN [Concomitant]
     Indication: PAIN
     Route: 048
  4. VICODIN [Concomitant]
     Indication: RHEUMATOID ARTHRITIS
  5. CETIRIZINE HCL [Concomitant]
     Indication: SINUS DISORDER
     Route: 048
  6. CETIRIZINE HCL [Concomitant]
     Indication: HYPERSENSITIVITY
  7. NICOTINIC ACID [Concomitant]
     Indication: BLOOD CHOLESTEROL
     Route: 048

REACTIONS (2)
  - ABASIA [None]
  - CYSTITIS [None]
